FAERS Safety Report 8199451-1 (Version None)
Quarter: 2012Q1

REPORT INFORMATION
  Report Type: 
  Country: None (occurrence: None)
  Receive Date: 20120309
  Receipt Date: 20120302
  Transmission Date: 20120608
  Serious: Yes (Other)
  Sender: FDA-Public Use
  Company Number: BR-PFIZER INC-2012057882

PATIENT
  Age: 72 Year
  Sex: Male

DRUGS (3)
  1. XALATAN [Suspect]
     Indication: INTRAOCULAR PRESSURE TEST
     Dosage: UNK
     Route: 047
     Dates: start: 20020101, end: 20111001
  2. XALATAN [Suspect]
     Dosage: 1 DROP IN EACH EYE DAILY
  3. XALATAN [Suspect]
     Dosage: 2 DROPS IN EACH EYE DAILY

REACTIONS (1)
  - INTRAOCULAR PRESSURE INCREASED [None]
